FAERS Safety Report 6307442-8 (Version None)
Quarter: 2009Q3

REPORT INFORMATION
  Report Type: 
  Country: None (occurrence: None)
  Receive Date: 20090813
  Receipt Date: 20090609
  Transmission Date: 20100115
  Serious: Yes (Hospitalization)
  Sender: FDA-Public Use
  Company Number: US-BRISTOL-MYERS SQUIBB COMPANY-14658421

PATIENT

DRUGS (1)
  1. IXEMPRA KIT [Suspect]
     Dosage: 5 TH TREATMENT OF IXEMPRA

REACTIONS (1)
  - BONE MARROW FAILURE [None]
